FAERS Safety Report 9173362 (Version 1)
Quarter: 2013Q1

REPORT INFORMATION
  Report Type: Spontaneous
  Country: US (occurrence: None)
  Receive Date: 20130313
  Receipt Date: 20130313
  Transmission Date: 20140127
  Serious: No
  Sender: FDA-Public Use
  Company Number: AEUSA201200228

PATIENT
  Age: 61 Year
  Sex: Female
  Weight: 77.11 kg

DRUGS (11)
  1. PROLASTIN-C [Suspect]
     Indication: ALPHA-1 ANTI-TRYPSIN DEFICIENCY
     Route: 042
     Dates: start: 2010
  2. XANAX [Concomitant]
  3. NAPROXEN [Concomitant]
  4. PROVENTIL [Concomitant]
  5. ADVAIR [Concomitant]
  6. SINGULAIR [Concomitant]
  7. NORVASC [Concomitant]
  8. NEXIUM [Concomitant]
  9. LASIX [Concomitant]
  10. CRESTOR [Concomitant]
  11. BACTRIM [Concomitant]

REACTIONS (1)
  - Vaginal discharge [None]
